FAERS Safety Report 6086047-0 (Version None)
Quarter: 2009Q1

REPORT INFORMATION
  Report Type: 
  Country: None (occurrence: None)
  Receive Date: 20090217
  Receipt Date: 20090217
  Transmission Date: 20090719
  Serious: Yes (Other)
  Sender: FDA-Public Use
  Company Number: None

PATIENT
  Sex: Female
  Weight: 81.1939 kg

DRUGS (1)
  1. VENTOLIN HFA [Suspect]
     Indication: ASTHMA
     Dosage: EVERY 4/6 HOURS PRN INHAL EVERY
     Dates: start: 20090101, end: 20090215

REACTIONS (6)
  - ABDOMINAL DISCOMFORT [None]
  - ASTHMA [None]
  - CONDITION AGGRAVATED [None]
  - DRUG EFFECT DECREASED [None]
  - HYPERSENSITIVITY [None]
  - RASH [None]
